FAERS Safety Report 11099771 (Version 1)
Quarter: 2015Q2

REPORT INFORMATION
  Report Type: Spontaneous
  Country: PL (occurrence: None)
  Receive Date: 20150506
  Receipt Date: 20150506
  Transmission Date: 20150821
  Serious: Yes (Other)
  Sender: FDA-Public Use
  Company Number: ADR-2015-00884

PATIENT
  Age: 57 Year
  Sex: Female

DRUGS (2)
  1. RILUZOLE. [Suspect]
     Active Substance: RILUZOLE
     Indication: AMYOTROPHIC LATERAL SCLEROSIS
     Dosage: 100MG/DAY
     Dates: start: 201201
  2. BACLOFEN. [Suspect]
     Active Substance: BACLOFEN
     Indication: AMYOTROPHIC LATERAL SCLEROSIS
     Dosage: 10MG/DAY
     Dates: start: 201201

REACTIONS (16)
  - Disease progression [None]
  - Gait disturbance [None]
  - Amyotrophic lateral sclerosis [None]
  - Condition aggravated [None]
  - Muscle atrophy [None]
  - Anxiety [None]
  - Muscle spasms [None]
  - Tearfulness [None]
  - Thermal burn [None]
  - Fatigue [None]
  - Muscle spasticity [None]
  - Myalgia [None]
  - Dysarthria [None]
  - Muscle contractions involuntary [None]
  - Depressed mood [None]
  - Activities of daily living impaired [None]

NARRATIVE: CASE EVENT DATE: 20150313
